FAERS Safety Report 8912312 (Version 1)
Quarter: 2012Q4

REPORT INFORMATION
  Report Type: 
  Country: US (occurrence: US)
  Receive Date: 20121116
  Receipt Date: 20121116
  Transmission Date: 20130627
  Serious: No
  Sender: FDA-Public Use
  Company Number: US-BAYER-2012-118822

PATIENT
  Age: 56 Year
  Sex: Male
  Weight: 70.3 kg

DRUGS (15)
  1. BETASERON [Suspect]
     Indication: MULTIPLE SCLEROSIS
  2. ACTHAR [Concomitant]
  3. AMITRIPTYLINE [Concomitant]
  4. BABY ASPIRIN [Concomitant]
  5. ATORVASTATIN [Concomitant]
  6. BACLOFEN [Concomitant]
  7. COREG [Concomitant]
  8. CLONAZEPAM [Concomitant]
  9. DIAZEPAM [Concomitant]
  10. ONGLYZA [Concomitant]
  11. OXCARBAZEPINE [Concomitant]
  12. OXYCODON [Concomitant]
  13. PLAVIX [Concomitant]
  14. PROVIGIL [Concomitant]
  15. RAMIPRIL [Concomitant]

REACTIONS (4)
  - Dizziness [None]
  - Balance disorder [None]
  - Injection site pain [None]
  - Injection site vesicles [None]
